FAERS Safety Report 7877604-7 (Version None)
Quarter: 2011Q4

REPORT INFORMATION
  Report Type: 
  Country: None (occurrence: None)
  Receive Date: 20111031
  Receipt Date: 20111020
  Transmission Date: 20120403
  Serious: Yes (Death, Other)
  Sender: FDA-Public Use
  Company Number: JP-ASTRAZENECA-2011SE55509

PATIENT
  Age: 85 Year
  Sex: Male

DRUGS (12)
  1. LEVOFLOXACIN [Concomitant]
     Indication: URINARY TRACT INFECTION
     Route: 048
     Dates: start: 20110812, end: 20110813
  2. PREDNISOLONE [Concomitant]
     Indication: RHEUMATOID ARTHRITIS
     Route: 048
     Dates: start: 20110819, end: 20110829
  3. PRAVASTATIN SODIUM [Concomitant]
     Indication: HYPERLIPIDAEMIA
     Route: 048
     Dates: start: 20110805, end: 20110819
  4. EQUA [Concomitant]
     Indication: DIABETES MELLITUS
     Route: 048
     Dates: start: 20110803, end: 20110819
  5. RASILEZ [Concomitant]
     Indication: HYPERTENSION
     Route: 048
     Dates: start: 20110805, end: 20110819
  6. URIEF [Concomitant]
     Indication: BENIGN PROSTATIC HYPERPLASIA
     Route: 048
     Dates: start: 20110805, end: 20110817
  7. CEFTRIAXONE NA [Concomitant]
     Indication: URINARY TRACT INFECTION
     Route: 041
     Dates: start: 20110819, end: 20110822
  8. CIBENOL [Concomitant]
     Indication: TACHYARRHYTHMIA
     Route: 048
     Dates: start: 20110805, end: 20110816
  9. MEROPENEM [Concomitant]
     Indication: URINARY TRACT INFECTION
     Route: 041
     Dates: start: 20110823
  10. OMEPRAZOLE [Suspect]
     Indication: GASTRIC ULCER HAEMORRHAGE
     Route: 048
     Dates: start: 20110731, end: 20110818
  11. OMEPRAZOLE [Suspect]
     Indication: GASTRIC ULCER HAEMORRHAGE
     Route: 041
     Dates: start: 20110727, end: 20110730
  12. FAMOTIDINE [Concomitant]
     Indication: GASTRIC ULCER
     Route: 048
     Dates: start: 20110819, end: 20110829

REACTIONS (4)
  - URINARY TRACT INFECTION [None]
  - NEUTROPENIA [None]
  - PYREXIA [None]
  - CEREBRAL HAEMORRHAGE [None]
